FAERS Safety Report 5199310-2 (Version None)
Quarter: 2006Q4

REPORT INFORMATION
  Report Type: 
  Country: None (occurrence: None)
  Receive Date: 20061016
  Receipt Date: 20060621
  Transmission Date: 20070319
  Serious: No
  Sender: FDA-Public Use
  Company Number: 2006SP002481

PATIENT
  Age: 60 Year
  Sex: Male
  Weight: 181.4388 kg

DRUGS (17)
  1. LUNESTA [Suspect]
     Indication: INSOMNIA
     Dosage: SEE IMAGE, ORAL
     Route: 048
     Dates: start: 20060301, end: 20060401
  2. ASPIRIN [Concomitant]
  3. ATENOLOL [Concomitant]
  4. BYETTA [Concomitant]
  5. PIOGLITAZONE [Concomitant]
  6. HYDROCHLORIDE [Concomitant]
  7. CARAFATE [Concomitant]
  8. DITROPAN XL [Concomitant]
  9. EFFEXOR [Concomitant]
  10. GLUCOVANCE [Concomitant]
  11. ATORVASTATIN CALCIUM [Concomitant]
  12. LOTREL [Concomitant]
  13. PANTOPRAZOLE SODIUM [Concomitant]
  14. REQUIP [Concomitant]
  15. SEROQUEL [Concomitant]
  16. SYNTHROID [Concomitant]
  17. TEMAZEPAM [Concomitant]

REACTIONS (2)
  - DRUG EFFECT DECREASED [None]
  - FUNGAL INFECTION [None]
